FAERS Safety Report 8693537 (Version 2)
Quarter: 2012Q4

REPORT INFORMATION
  Report Type: 
  Country: CA (occurrence: CA)
  Receive Date: 20120730
  Receipt Date: 20121107
  Transmission Date: 20130627
  Serious: Yes (Hospitalization, Other)
  Sender: FDA-Public Use
  Company Number: PHMT2006CA00909

PATIENT
  Age: 48 Year
  Sex: Female

DRUGS (10)
  1. SANDOSTATIN LAR [Suspect]
     Indication: PANCREATITIS CHRONIC
     Dosage: 30 mg, every three weeks
     Route: 030
     Dates: start: 19990101, end: 20070705
  2. SANDOSTATIN LAR [Suspect]
     Dosage: 20 mg once a month
  3. SANDOSTATIN LAR [Suspect]
     Dosage: 10 mg once a month
  4. ATIVAN [Concomitant]
  5. CREON [Concomitant]
     Dosage: 20 mg 3-4 pills a meal
  6. DOMPERIDONE [Concomitant]
     Dosage: 20 mg AC meals
  7. LOSEC [Concomitant]
  8. NEXIUM [Concomitant]
     Dosage: 40 mg, QD
  9. OXAZEPAM [Concomitant]
     Dosage: 15 mg, 1-2/night
  10. PAXIL [Concomitant]
     Dosage: 30 mg, QD

REACTIONS (36)
  - Pancreatic mass [Unknown]
  - Infection [Unknown]
  - Sepsis [Recovered/Resolved]
  - Fluid intake reduced [Recovering/Resolving]
  - Hypotension [Unknown]
  - Pain [Unknown]
  - Weight decreased [Unknown]
  - Decreased appetite [Recovering/Resolving]
  - Bile duct stone [Unknown]
  - Nausea [Unknown]
  - Pancreatitis [Unknown]
  - Abdominal distension [Unknown]
  - Abdominal pain [Recovering/Resolving]
  - Vomiting [Recovering/Resolving]
  - Asthenia [Unknown]
  - Malaise [Unknown]
  - Cachexia [Unknown]
  - Urinary tract infection [Recovered/Resolved]
  - Intestinal mass [Unknown]
  - Pancreatolithiasis [Unknown]
  - Syncope [Unknown]
  - Cholecystitis [Recovered/Resolved]
  - Blood bilirubin increased [Recovered/Resolved]
  - Increased appetite [Unknown]
  - Dacryostenosis acquired [Unknown]
  - Fall [Unknown]
  - Contusion [Unknown]
  - Chest pain [Unknown]
  - Arthralgia [Unknown]
  - Urinary incontinence [Unknown]
  - Urine output increased [Unknown]
  - Blood glucose increased [Unknown]
  - Oedema peripheral [Unknown]
  - Heart rate increased [Unknown]
  - Frequent bowel movements [Unknown]
  - Faeces discoloured [Unknown]
